FAERS Safety Report 11948561 (Version 1)
Quarter: 2016Q1

REPORT INFORMATION
  Report Type: Spontaneous
  Country: US (occurrence: None)
  Receive Date: 20160121
  Receipt Date: 20160121
  Transmission Date: 20160526
  Serious: Yes (Other)
  Sender: FDA-Public Use
  Company Number: None

PATIENT
  Age: 60 Year
  Sex: Male
  Weight: 98 kg

DRUGS (11)
  1. AMBIEN [Concomitant]
     Active Substance: ZOLPIDEM TARTRATE
  2. MAGNESIUM [Concomitant]
     Active Substance: MAGNESIUM
  3. ASA [Concomitant]
     Active Substance: ASPIRIN
  4. MIRALAX [Concomitant]
     Active Substance: POLYETHYLENE GLYCOL 3350
  5. XANAX [Concomitant]
     Active Substance: ALPRAZOLAM
  6. OXYCODONE [Concomitant]
     Active Substance: OXYCODONE
  7. MVI [Concomitant]
     Active Substance: VITAMINS
  8. METHOCARBAMOL. [Concomitant]
     Active Substance: METHOCARBAMOL
  9. VALIUM [Concomitant]
     Active Substance: DIAZEPAM
  10. HARVONI [Suspect]
     Active Substance: LEDIPASVIR\SOFOSBUVIR
     Indication: HEPATITIS C
     Dosage: 1 PILL, QD,ORAL
     Dates: start: 20160111, end: 20160117
  11. ACIDOPHILUS PROBIOTIC [Concomitant]

REACTIONS (4)
  - Hepatic pain [None]
  - Pharyngeal oedema [None]
  - Abdominal pain [None]
  - Gastrointestinal disorder [None]

NARRATIVE: CASE EVENT DATE: 20160111
